FAERS Safety Report 5964395-X (Version None)
Quarter: 2008Q4

REPORT INFORMATION
  Report Type: 
  Country: None (occurrence: None)
  Receive Date: 20081124
  Receipt Date: 20081112
  Transmission Date: 20090506
  Serious: Yes (Death)
  Sender: FDA-Public Use
  Company Number: FR-PFIZER INC-2008096634

PATIENT
  Age: 68 Year
  Sex: Male

DRUGS (3)
  1. SUTENT [Suspect]
     Indication: RENAL CANCER METASTATIC
     Dosage: FREQ:4 WEEKS/6
     Dates: start: 20080101
  2. ACEBUTOLOL HYDROCHLORIDE [Concomitant]
  3. URAPIDIL [Concomitant]

REACTIONS (1)
  - MYOCARDIAL INFARCTION [None]
